FAERS Safety Report 10266505 (Version 1)
Quarter: 2014Q2

REPORT INFORMATION
  Report Type: Spontaneous
  Country: US (occurrence: None)
  Receive Date: 20140625
  Receipt Date: 20140625
  Transmission Date: 20141212
  Serious: Yes (Disabling, Other)
  Sender: FDA-Public Use
  Company Number: None

PATIENT
  Age: 27 Year
  Sex: Male
  Weight: 99.79 kg

DRUGS (1)
  1. OXYCONTIN [Suspect]
     Indication: BLAST INJURY
     Dosage: 1 PILL; THREE TIMES DAILY
     Route: 048
     Dates: start: 20060612, end: 20140624

REACTIONS (3)
  - Constipation [None]
  - Renal pain [None]
  - Drug effect decreased [None]
